FAERS Safety Report 7212876-3 (Version None)
Quarter: 2011Q1

REPORT INFORMATION
  Report Type: 
  Country: None (occurrence: None)
  Receive Date: 20110106
  Receipt Date: 20110105
  Transmission Date: 20110831
  Serious: Yes (Life-Threatening, Other)
  Sender: FDA-Public Use
  Company Number: DE-JNJFOC-20101200325

PATIENT
  Age: 67 Year
  Sex: Female

DRUGS (4)
  1. TAVANIC [Suspect]
     Indication: TRACHEOBRONCHITIS
     Route: 048
  2. TAVANIC [Suspect]
     Indication: SINUSITIS
     Route: 048
  3. PARACODINE [Concomitant]
     Indication: TRACHEITIS
     Route: 065
  4. KEPINOL [Concomitant]
     Indication: ACUTE SINUSITIS
     Route: 065

REACTIONS (6)
  - ABDOMINAL DISTENSION [None]
  - CHEST PAIN [None]
  - ABDOMINAL PAIN [None]
  - HEPATIC ENZYME INCREASED [None]
  - CYSTITIS [None]
  - PANCREATIC ENZYMES INCREASED [None]
